FAERS Safety Report 10384273 (Version 1)
Quarter: 2014Q3

REPORT INFORMATION
  Report Type: Spontaneous
  Country: US (occurrence: None)
  Receive Date: 20140813
  Receipt Date: 20140813
  Transmission Date: 20150326
  Serious: No
  Sender: FDA-Public Use
  Company Number: None

PATIENT
  Age: 28 Year
  Sex: Male

DRUGS (1)
  1. TEMOZOLOMIDE 350MG (250MG + 100MG) SANDOZ [Suspect]
     Active Substance: TEMOZOLOMIDE
     Dosage: 350MG   DAILY FOR 5 DAYS  PO
     Route: 048

REACTIONS (1)
  - Chest pain [None]
